FAERS Safety Report 9476851 (Version 1)
Quarter: 2013Q3

REPORT INFORMATION
  Report Type: Spontaneous
  Country: NL (occurrence: NL)
  Receive Date: 20130826
  Receipt Date: 20130826
  Transmission Date: 20140515
  Serious: Yes (Hospitalization, Other)
  Sender: FDA-Public Use
  Company Number: NL-ACTAVIS-2013-14584

PATIENT
  Sex: Female
  Weight: 4 kg

DRUGS (4)
  1. TRAMADOL HYDROCHLORIDE (UNKNOWN) [Suspect]
     Indication: HEADACHE
     Dosage: 100 MG, TID
     Route: 064
  2. TRAMADOL HYDROCHLORIDE (UNKNOWN) [Suspect]
     Indication: MIGRAINE
     Dosage: 100 MG, TID
     Route: 063
  3. PARACETAMOL + CODEINE [Concomitant]
     Indication: HEADACHE
     Dosage: UNKNOWN
     Route: 064
  4. PARACETAMOL + CODEINE [Concomitant]
     Indication: MIGRAINE

REACTIONS (3)
  - Drug withdrawal syndrome neonatal [Recovered/Resolved]
  - Foetal exposure during pregnancy [Recovered/Resolved]
  - Exposure during breast feeding [Recovered/Resolved]
